FAERS Safety Report 4964195-3 (Version None)
Quarter: 2006Q1

REPORT INFORMATION
  Report Type: 
  Country: None (occurrence: None)
  Receive Date: 20060331
  Receipt Date: 20060320
  Transmission Date: 20060701
  Serious: Yes (Hospitalization)
  Sender: FDA-Public Use
  Company Number: 06H-163-0306791-00

PATIENT
  Sex: Male

DRUGS (2)
  1. SODIUM CHLORIDE [Suspect]
     Indication: DEHYDRATION
     Dosage: 250-500 CC/HR, INTRAVENOUS
     Dates: start: 20060308
  2. SODIUM CHLORIDE [Suspect]
     Indication: DEHYDRATION
     Dosage: 250-500 CC/HR, INTRAVENOUS
     Dates: start: 20060308

REACTIONS (2)
  - AIR EMBOLISM [None]
  - ILIAC ARTERY EMBOLISM [None]
